FAERS Safety Report 20223529 (Version 1)
Quarter: 2021Q4

REPORT INFORMATION
  Report Type: Spontaneous
  Country: CA (occurrence: CA)
  Receive Date: 20211223
  Receipt Date: 20211223
  Transmission Date: 20220303
  Serious: Yes (Death)
  Sender: FDA-Public Use
  Company Number: CA-TEVA-2021-CA-1990728

PATIENT
  Age: 51 Year
  Sex: Male

DRUGS (6)
  1. MORPHINE SULFATE [Suspect]
     Active Substance: MORPHINE SULFATE
     Indication: Product used for unknown indication
     Route: 065
  2. CODEINE [Suspect]
     Active Substance: CODEINE
     Indication: Product used for unknown indication
     Route: 065
  3. DIAZEPAM [Concomitant]
     Active Substance: DIAZEPAM
  4. GABAPENTIN [Concomitant]
     Active Substance: GABAPENTIN
  5. QUETIAPINE [Concomitant]
     Active Substance: QUETIAPINE
  6. TEMAZEPAM [Concomitant]
     Active Substance: TEMAZEPAM

REACTIONS (2)
  - Death [Fatal]
  - Overdose [Fatal]
